APPROVED DRUG PRODUCT: GLYCOPYRROLATE
Active Ingredient: GLYCOPYRROLATE
Strength: 1MG
Dosage Form/Route: TABLET;ORAL
Application: A090020 | Product #001 | TE Code: AA
Applicant: OXFORD PHARMACEUTICALS LLC
Approved: Oct 19, 2011 | RLD: No | RS: No | Type: RX